FAERS Safety Report 16880088 (Version 1)
Quarter: 2019Q4

REPORT INFORMATION
  Report Type: Spontaneous
  Country: CA (occurrence: CA)
  Receive Date: 20191003
  Receipt Date: 20191003
  Transmission Date: 20200122
  Serious: Yes (Disabling, Other)
  Sender: FDA-Public Use
  Company Number: CA-AUROBINDO-AUR-APL-2019-063665

PATIENT
  Age: 51 Year
  Sex: Male
  Weight: 106 kg

DRUGS (5)
  1. METOPROLOL. [Concomitant]
     Active Substance: METOPROLOL
     Indication: PRODUCT USED FOR UNKNOWN INDICATION
     Dosage: UNK
     Route: 065
  2. AMLODIPINE [Concomitant]
     Active Substance: AMLODIPINE BESYLATE
     Indication: PRODUCT USED FOR UNKNOWN INDICATION
     Dosage: UNK
     Route: 065
  3. CIPROFLOXACIN FILM-COATED TABLETS [Suspect]
     Active Substance: CIPROFLOXACIN
     Indication: BACTERIAL PROSTATITIS
     Dosage: 500.0 MILLIGRAM, TWO TIMES A DAY
     Route: 048
  4. LOSARTAN. [Concomitant]
     Active Substance: LOSARTAN
     Indication: PRODUCT USED FOR UNKNOWN INDICATION
     Dosage: UNK
     Route: 065
  5. AMILORIDE HYDROCHLORIDE. [Concomitant]
     Active Substance: AMILORIDE HYDROCHLORIDE
     Indication: PRODUCT USED FOR UNKNOWN INDICATION
     Dosage: UNK
     Route: 065

REACTIONS (5)
  - Myalgia [Recovering/Resolving]
  - Tendonitis [Recovering/Resolving]
  - Grip strength decreased [Recovering/Resolving]
  - Malaise [Recovering/Resolving]
  - Mobility decreased [Recovering/Resolving]
